FAERS Safety Report 9032110 (Version 1)
Quarter: 2013Q1

REPORT INFORMATION
  Report Type: Spontaneous
  Country: US (occurrence: US)
  Receive Date: 20130122
  Receipt Date: 20130122
  Transmission Date: 20140127
  Serious: Yes (Hospitalization)
  Sender: FDA-Public Use
  Company Number: US-BAYER-2013-006775

PATIENT
  Age: 24 Year
  Sex: Female
  Weight: 98.1 kg

DRUGS (9)
  1. YAZ [Suspect]
     Dosage: UNK
  2. YASMIN [Suspect]
     Dosage: UNK
  3. AZITHROMYCIN [Concomitant]
     Dosage: 250 MG, UNK
     Route: 048
     Dates: start: 200804
  4. CITALOPRAM [Concomitant]
     Indication: DEPRESSION
     Dosage: 40 MG, UNK
     Route: 048
     Dates: start: 20080110, end: 20080423
  5. PRENATAL PLUS [Concomitant]
     Dosage: UNK
     Route: 048
     Dates: start: 20080924, end: 2008
  6. ZITHROMAX [Concomitant]
     Dosage: UNK
  7. CELEXA [Concomitant]
     Dosage: UNK
  8. TORADOL [Concomitant]
     Dosage: UNK
  9. LORTAB [Concomitant]
     Indication: PAIN
     Dosage: UNK

REACTIONS (2)
  - Pulmonary embolism [None]
  - Deep vein thrombosis [None]
